FAERS Safety Report 10247792 (Version 1)
Quarter: 2014Q2

REPORT INFORMATION
  Report Type: Spontaneous
  Country: US (occurrence: US)
  Receive Date: 20140619
  Receipt Date: 20140619
  Transmission Date: 20141212
  Serious: No
  Sender: FDA-Public Use
  Company Number: US-PFIZER INC-2014166875

PATIENT
  Age: 74 Year
  Sex: Female

DRUGS (5)
  1. DILANTIN [Suspect]
     Indication: HEADACHE
     Dosage: 100 MG, 3X/DAY
     Route: 048
     Dates: start: 1977
  2. DILANTIN [Suspect]
     Indication: VERTIGO
  3. STRATTERA [Concomitant]
     Indication: ATTENTION DEFICIT/HYPERACTIVITY DISORDER
     Dosage: 60 MG, UNK
  4. THYROXIN [Concomitant]
     Indication: AUTOIMMUNE THYROIDITIS
     Dosage: 15 UG, UNK
  5. PAXIL [Concomitant]
     Indication: DEPRESSION
     Dosage: 10 MG, UNK

REACTIONS (3)
  - Product physical issue [Unknown]
  - Drug level decreased [Unknown]
  - Drug ineffective [Not Recovered/Not Resolved]
